FAERS Safety Report 9305989 (Version 1)
Quarter: 2013Q1

REPORT INFORMATION
  Report Type: Spontaneous
  Country: GB (occurrence: None)
  Receive Date: 20130207
  Receipt Date: 20130207
  Transmission Date: 20140127
  Serious: Yes (Hospitalization)
  Sender: FDA-Public Use
  Company Number: TPA2012A09718

PATIENT
  Age: 62 Year
  Sex: Female

DRUGS (10)
  1. ADENURIC (FEBUXOSTAT) [Suspect]
     Indication: GOUT
     Dates: start: 201208, end: 20121125
  2. IMATINIB [Suspect]
     Indication: CHRONIC MYELOID LEUKAEMIA
     Dates: end: 20121205
  3. ACYCLOVIR (ACICLOVIR) (ACICLOVIR) [Concomitant]
  4. OMEPRAZOLE (OMEPRAZOLE) [Concomitant]
  5. VANCOMYCIN (VANCOMYCIN) [Concomitant]
  6. IBUPROFEN (IBUPROFEN) [Concomitant]
  7. PARACETAMOL (PARACETAMOL) [Concomitant]
  8. WARFARIN (WARFARIN) [Concomitant]
  9. DEXAMETHASONE (DEXAMETHASONE) [Concomitant]
  10. CYCLOPENTOLATE (CYCLOPENTOLATE) [Concomitant]

REACTIONS (7)
  - Clostridium difficile infection [None]
  - Off label use [None]
  - Cough [None]
  - Nausea [None]
  - Renal failure acute [None]
  - Gout [None]
  - Potentiating drug interaction [None]
